FAERS Safety Report 4705895-X (Version None)
Quarter: 2005Q2

REPORT INFORMATION
  Report Type: 
  Country: None (occurrence: None)
  Receive Date: 20050629
  Receipt Date: 20050621
  Transmission Date: 20051028
  Serious: Yes (Hospitalization)
  Sender: FDA-Public Use
  Company Number: 2005091328

PATIENT
  Age: 52 Year
  Sex: Male
  Weight: 63 kg

DRUGS (6)
  1. VORICONAZOLE ORAL SUSPENSION (VORICONAZOLE) [Suspect]
     Indication: SYSTEMIC CANDIDA
     Dosage: 800 MG (INTERVAL:  EVERY DAY), ORAL
     Route: 048
     Dates: start: 20041118, end: 20041126
  2. AMIKACIN [Concomitant]
  3. PIPERACILLINE SEL DE NA; TAZOBACTA (PIPERACILLIN, TAZOBACTAM) [Concomitant]
  4. AMPHOTERICIN B [Concomitant]
  5. CYCLOSPORINE [Concomitant]
  6. VANCOMYCINE CHLORHYDRATE (VANCOMYCIN HYDROCHLORIDE) [Concomitant]

REACTIONS (4)
  - OVERDOSE [None]
  - PYREXIA [None]
  - RASH MACULO-PAPULAR [None]
  - RENAL FAILURE [None]
